FAERS Safety Report 10692835 (Version 1)
Quarter: 2015Q1

REPORT INFORMATION
  Report Type: Spontaneous
  Country: US (occurrence: None)
  Receive Date: 20150105
  Receipt Date: 20150105
  Transmission Date: 20150720
  Serious: Yes (Disabling)
  Sender: FDA-Public Use
  Company Number: None

PATIENT
  Age: 72 Year
  Sex: Female

DRUGS (1)
  1. LUNESTA [Suspect]
     Active Substance: ESZOPICLONE
     Indication: INSOMNIA
     Dosage: 1 PILL, ONCE DAILY
     Dates: start: 20130401, end: 20131220

REACTIONS (5)
  - Panic attack [None]
  - Depression [None]
  - Drug withdrawal syndrome [None]
  - Drug dependence [None]
  - Overdose [None]

NARRATIVE: CASE EVENT DATE: 20131101
